FAERS Safety Report 5566351-2 (Version None)
Quarter: 2007Q4

REPORT INFORMATION
  Report Type: 
  Country: None (occurrence: None)
  Receive Date: 20071219
  Receipt Date: 20071207
  Transmission Date: 20080405
  Serious: Yes (Hospitalization)
  Sender: FDA-Public Use
  Company Number: US-ROCHE-521655

PATIENT
  Age: 56 Year
  Sex: Male
  Weight: 96.3 kg

DRUGS (11)
  1. BLINDED PEG-INTERFERON ALFA 2A [Suspect]
     Route: 058
     Dates: start: 20070718, end: 20070726
  2. RIBAVIRIN [Suspect]
     Route: 048
     Dates: start: 20070718, end: 20070728
  3. LISINOPRIL [Concomitant]
     Dates: start: 20060201
  4. ATENOLOL [Concomitant]
     Dates: start: 20070223
  5. HYDROCHLOROTHIAZIDE [Concomitant]
     Dates: start: 20070504
  6. GLYBURIDE [Concomitant]
     Dates: start: 20070627
  7. METFORMIN HCL [Concomitant]
     Dates: start: 20070212
  8. EZETIMIBE/SIMVASTATIN [Concomitant]
     Dates: start: 20070226
  9. OMEPRAZOLE [Concomitant]
     Dates: start: 20060201
  10. GABAPENTIN [Concomitant]
     Dates: start: 20060201
  11. CLOPIDOGREL [Concomitant]
     Dates: start: 20060201

REACTIONS (3)
  - AZOTAEMIA [None]
  - DEHYDRATION [None]
  - RENAL FAILURE ACUTE [None]
